FAERS Safety Report 12392058 (Version 4)
Quarter: 2016Q3

REPORT INFORMATION
  Report Type: Spontaneous
  Country: BR (occurrence: BR)
  Receive Date: 20160523
  Receipt Date: 20160726
  Transmission Date: 20161109
  Serious: Yes (Other)
  Sender: FDA-Public Use
  Company Number: BR-ALEXION PHARMACEUTICALS INC-A201603624

PATIENT
  Age: 33 Year
  Sex: Female
  Weight: 40 kg

DRUGS (2)
  1. SOLIRIS [Suspect]
     Active Substance: ECULIZUMAB
     Indication: HAEMOLYTIC URAEMIC SYNDROME
     Dosage: UNK
     Route: 042
  2. SOLIRIS [Suspect]
     Active Substance: ECULIZUMAB
     Dosage: 1200 MG, EVERY 15 DAYS
     Route: 042
     Dates: start: 20150424

REACTIONS (22)
  - Oedema peripheral [Recovered/Resolved]
  - Blood lactate dehydrogenase abnormal [Not Recovered/Not Resolved]
  - Headache [Recovered/Resolved]
  - Peripheral swelling [Recovered/Resolved]
  - Secretion discharge [Unknown]
  - Oropharyngeal pain [Recovered/Resolved]
  - Total complement activity increased [Not Recovered/Not Resolved]
  - Arthritis infective [Recovered/Resolved]
  - Autoimmune disorder [Unknown]
  - Haemoglobin decreased [Not Recovered/Not Resolved]
  - Papule [Not Recovered/Not Resolved]
  - Haemolysis [Not Recovered/Not Resolved]
  - Sinusitis [Recovered/Resolved]
  - Vasculitis [Unknown]
  - Erythema [Not Recovered/Not Resolved]
  - Drug ineffective [Unknown]
  - Pyrexia [Unknown]
  - Face oedema [Not Recovered/Not Resolved]
  - Behcet^s syndrome [Unknown]
  - Hypersensitivity [Not Recovered/Not Resolved]
  - Haptoglobin increased [Not Recovered/Not Resolved]
  - Pneumonia [Unknown]

NARRATIVE: CASE EVENT DATE: 20160510
